FAERS Safety Report 6039237-7 (Version None)
Quarter: 2009Q1

REPORT INFORMATION
  Report Type: 
  Country: None (occurrence: None)
  Receive Date: 20090115
  Receipt Date: 20090106
  Transmission Date: 20090719
  Serious: No
  Sender: FDA-Public Use
  Company Number: PHHY2008JP33354

PATIENT
  Age: 85 Year
  Sex: Male

DRUGS (4)
  1. DIOVAN [Suspect]
     Indication: HYPERTENSION
     Dosage: 80 MG/DAY
     Route: 048
     Dates: start: 20081206, end: 20081225
  2. MARZULENE S [Concomitant]
     Route: 048
  3. GASMOTIN [Concomitant]
     Route: 048
  4. RIZE [Concomitant]

REACTIONS (1)
  - URINARY RETENTION [None]
